FAERS Safety Report 7369992-5 (Version None)
Quarter: 2011Q1

REPORT INFORMATION
  Report Type: 
  Country: None (occurrence: None)
  Receive Date: 20110323
  Receipt Date: 20110309
  Transmission Date: 20110831
  Serious: Yes (Disabling, Other)
  Sender: FDA-Public Use
  Company Number: PHEH2004US02126

PATIENT
  Sex: Female

DRUGS (13)
  1. CATAPRES [Concomitant]
  2. NORVASC [Concomitant]
  3. SYNTHROID [Concomitant]
  4. THALIDOMIDE [Concomitant]
     Dosage: 100 MG, QD
     Dates: start: 20000101
  5. AREDIA [Suspect]
     Indication: MULTIPLE MYELOMA
     Dosage: 90 MG, QMO
     Route: 042
     Dates: start: 19970601, end: 20041001
  6. AREDIA [Suspect]
     Dosage: UNK
  7. THALIDOMIDE [Concomitant]
     Dosage: 50 MG, QD
     Dates: start: 19990601, end: 20000101
  8. PROTONIX [Concomitant]
     Dosage: 40 MG, QD
  9. COZAAR [Concomitant]
  10. FUROSEMIDE [Concomitant]
  11. TOPROL-XL [Concomitant]
     Dosage: 100 MG, QD
  12. MELPHALAN [Concomitant]
     Dosage: 4 DAYS/QMOS
     Dates: start: 19980801, end: 19990501
  13. PREDNISONE [Concomitant]
     Dosage: 4 DAYS/QMOS
     Dates: start: 19980801, end: 19990501

REACTIONS (15)
  - SOFT TISSUE DISORDER [None]
  - NECK PAIN [None]
  - OSTEONECROSIS OF JAW [None]
  - PURULENT DISCHARGE [None]
  - VIITH NERVE PARALYSIS [None]
  - NERVE ROOT LESION [None]
  - PLEURAL EFFUSION [None]
  - MANDIBULAR PROSTHESIS USER [None]
  - BONE DISORDER [None]
  - JOINT DISLOCATION [None]
  - NEURALGIA [None]
  - DEVICE FAILURE [None]
  - OEDEMA PERIPHERAL [None]
  - TOOTH ABSCESS [None]
  - DYSPNOEA EXERTIONAL [None]
